FAERS Safety Report 20226571 (Version 4)
Quarter: 2022Q1

REPORT INFORMATION
  Report Type: Report from Study
  Country: BR (occurrence: BR)
  Receive Date: 20211224
  Receipt Date: 20220129
  Transmission Date: 20220423
  Serious: Yes (Death, Other)
  Sender: FDA-Public Use
  Company Number: BR-NOVARTISPH-NVSC2021BR294320

PATIENT
  Age: 50 Year
  Sex: Female
  Weight: 55 kg

DRUGS (3)
  1. KISQALI [Suspect]
     Active Substance: RIBOCICLIB
     Indication: Breast cancer metastatic
     Dosage: UNK, QD
     Route: 048
     Dates: start: 202003, end: 202104
  2. LETROZOLE [Suspect]
     Active Substance: LETROZOLE
     Indication: Breast cancer metastatic
     Dosage: UNK
     Route: 048
     Dates: start: 202003, end: 202108
  3. FULVESTRANT [Suspect]
     Active Substance: FULVESTRANT
     Indication: Breast cancer metastatic
     Dosage: UNK, QD
     Route: 048
     Dates: start: 202003, end: 202108

REACTIONS (25)
  - Hepatic cirrhosis [Fatal]
  - Blood bilirubin abnormal [Fatal]
  - Jaundice [Fatal]
  - Chromaturia [Fatal]
  - Muscle atrophy [Fatal]
  - Hepatic failure [Fatal]
  - Ascites [Fatal]
  - Metastases to liver [Unknown]
  - Hepatic mass [Unknown]
  - Hepatic encephalopathy [Unknown]
  - Interstitial lung disease [Unknown]
  - Metastases to peritoneum [Not Recovered/Not Resolved]
  - Mental status changes [Unknown]
  - Hepatic lesion [Unknown]
  - Bone lesion [Unknown]
  - Osteosclerosis [Unknown]
  - Pulmonary mass [Unknown]
  - Lung consolidation [Unknown]
  - Pleural thickening [Unknown]
  - Pruritus [Unknown]
  - Fatigue [Unknown]
  - Treatment failure [Recovered/Resolved]
  - General physical health deterioration [Unknown]
  - Laboratory test abnormal [Unknown]
  - Drug ineffective [Unknown]

NARRATIVE: CASE EVENT DATE: 20210224
